FAERS Safety Report 7736916-8 (Version None)
Quarter: 2011Q3

REPORT INFORMATION
  Report Type: 
  Country: None (occurrence: None)
  Receive Date: 20110908
  Receipt Date: 20110706
  Transmission Date: 20111222
  Serious: Yes (Hospitalization, Other)
  Sender: FDA-Public Use
  Company Number: DE-CELGENEUS-062-50794-11083429

PATIENT
  Age: 78 Year
  Sex: Male

DRUGS (1)
  1. VIDAZA [Suspect]
     Route: 065

REACTIONS (3)
  - MESENTERIC ARTERY THROMBOSIS [None]
  - BRONCHOPULMONARY ASPERGILLOSIS [None]
  - LUNG INFECTION [None]
